FAERS Safety Report 7394573-7 (Version None)
Quarter: 2011Q2

REPORT INFORMATION
  Report Type: 
  Country: None (occurrence: None)
  Receive Date: 20110405
  Receipt Date: 20110330
  Transmission Date: 20111010
  Serious: No
  Sender: FDA-Public Use
  Company Number: US-PFIZER INC-US-WYE-H15529010

PATIENT
  Sex: Female

DRUGS (2)
  1. EFFEXOR [Suspect]
     Indication: TEMPOROMANDIBULAR JOINT SYNDROME
     Dosage: 37.5 MG, 1X/DAY
     Route: 065
  2. ZOLOFT [Suspect]
     Indication: TEMPOROMANDIBULAR JOINT SYNDROME

REACTIONS (1)
  - BRUXISM [None]
